FAERS Safety Report 5840676-5 (Version None)
Quarter: 2008Q3

REPORT INFORMATION
  Report Type: 
  Country: None (occurrence: None)
  Receive Date: 20080811
  Receipt Date: 20080805
  Transmission Date: 20090109
  Serious: Yes (Death, Hospitalization, Other)
  Sender: FDA-Public Use
  Company Number: PHEH2007US15315

PATIENT
  Sex: Male

DRUGS (22)
  1. ZOMETA [Suspect]
     Indication: MULTIPLE MYELOMA
     Dosage: 4 MG, Q 6 WEEKS
     Route: 042
     Dates: start: 20061201, end: 20070827
  2. ZOMETA [Suspect]
     Dosage: 4 MG, UNK
     Dates: start: 20050718
  3. ZOMETA [Suspect]
     Dosage: 4 MG, UNK
     Dates: start: 20070815
  4. REVLIMID [Suspect]
     Indication: MULTIPLE MYELOMA
     Dosage: 25 MG, QD
     Route: 048
     Dates: start: 20070801, end: 20070801
  5. THALIDOMIDE [Concomitant]
  6. ACETYLSALICYLIC ACID SRT [Concomitant]
  7. ALLOPURINOL [Concomitant]
  8. DECADRON /NET/ [Concomitant]
     Dosage: 40 MG, QW
  9. HYDROCODONE BITARTRATE [Concomitant]
     Indication: PAIN
  10. RENAGEL [Concomitant]
  11. GLYCOLAX [Concomitant]
  12. PRILOSEC [Concomitant]
  13. AMBIEN [Concomitant]
  14. MS CONTIN [Concomitant]
     Indication: PAIN
     Dosage: 30 MG, BID
  15. HYDROCHLOROTHIAZIDE [Concomitant]
  16. ATENOLOL [Concomitant]
  17. DEXAMETHAZONE-PIX [Concomitant]
  18. METFORMIN HCL [Concomitant]
  19. MULTIVITAMIN ^LAPPE^ [Concomitant]
     Dosage: UNK, QD
  20. FISH OIL [Concomitant]
     Dosage: UNK, QD
  21. MIRALAX [Concomitant]
     Dosage: UNK, QD
  22. BENTYL [Concomitant]
     Dosage: 20 MG, QID

REACTIONS (28)
  - ABDOMINAL DISTENSION [None]
  - ABDOMINAL PAIN [None]
  - ANAEMIA [None]
  - ANURIA [None]
  - BACK PAIN [None]
  - BLADDER CATHETERISATION [None]
  - BLOOD CREATININE INCREASED [None]
  - BLOOD UREA INCREASED [None]
  - BLOOD URIC ACID INCREASED [None]
  - CONSTIPATION [None]
  - DEHYDRATION [None]
  - DIARRHOEA [None]
  - FALL [None]
  - FATIGUE [None]
  - HAEMATOCRIT DECREASED [None]
  - HERPES ZOSTER [None]
  - HYPERCALCAEMIA [None]
  - HYPERURICAEMIA [None]
  - HYPOTENSION [None]
  - MULTIPLE MYELOMA [None]
  - MUSCULAR WEAKNESS [None]
  - NAUSEA [None]
  - OSTEOLYSIS [None]
  - POST HERPETIC NEURALGIA [None]
  - PROTEINURIA [None]
  - RENAL FAILURE [None]
  - SOMNOLENCE [None]
  - WHITE BLOOD CELL COUNT DECREASED [None]
